FAERS Safety Report 4400568-5 (Version None)
Quarter: 2004Q3

REPORT INFORMATION
  Report Type: 
  Country: None (occurrence: None)
  Receive Date: 20040716
  Receipt Date: 20040716
  Transmission Date: 20050211
  Serious: Yes (Hospitalization)
  Sender: FDA-Public Use
  Company Number: None

PATIENT
  Sex: Male
  Weight: 58.514 kg

DRUGS (1)
  1. GAMIMUNE N 10% [Suspect]
     Indication: IMMUNODEFICIENCY
     Dosage: 40 GRAM  EVERY 3 WE  INTRAVENOUS
     Route: 042
     Dates: start: 20040715, end: 20040715

REACTIONS (1)
  - ANAPHYLACTIC REACTION [None]
